FAERS Safety Report 5477778-1 (Version None)
Quarter: 2007Q3

REPORT INFORMATION
  Report Type: 
  Country: None (occurrence: None)
  Receive Date: 20070905
  Receipt Date: 20070905
  Transmission Date: 20080115
  Serious: Yes (Hospitalization)
  Sender: FDA-Public Use
  Company Number: 3864 / 6029069

PATIENT
  Age: 22 Year
  Sex: Female

DRUGS (3)
  1. CIPROFLOXACIN HCL [Suspect]
     Indication: PNEUMONIA
  2. DOXYCYCLINE [Concomitant]
     Indication: PNEUMONIA
  3. PIPERACILLIN AND TAZOBACTAM [Concomitant]

REACTIONS (1)
  - TORSADE DE POINTES [None]
